FAERS Safety Report 5548294-3 (Version None)
Quarter: 2007Q4

REPORT INFORMATION
  Report Type: 
  Country: None (occurrence: None)
  Receive Date: 20071211
  Receipt Date: 20070402
  Transmission Date: 20080405
  Serious: No
  Sender: FDA-Public Use
  Company Number: US-AMGEN-KDL215086

PATIENT
  Sex: Female
  Weight: 70.4 kg

DRUGS (5)
  1. ENBREL [Suspect]
     Indication: RHEUMATOID ARTHRITIS
     Route: 058
     Dates: start: 20060801, end: 20070315
  2. METHOTREXATE [Concomitant]
     Route: 048
     Dates: start: 20060801
  3. VYTORIN [Concomitant]
  4. CYMBALTA [Concomitant]
  5. IMITREX [Concomitant]

REACTIONS (3)
  - BLISTER [None]
  - PUSTULAR PSORIASIS [None]
  - RASH [None]
